FAERS Safety Report 4975604-8 (Version None)
Quarter: 2006Q2

REPORT INFORMATION
  Report Type: 
  Country: None (occurrence: None)
  Receive Date: 20060411
  Receipt Date: 20060330
  Transmission Date: 20061013
  Serious: Yes (Life-Threatening, Hospitalization)
  Sender: FDA-Public Use
  Company Number: HQWYE621304APR06

PATIENT
  Age: 53 Year
  Sex: Female

DRUGS (1)
  1. RAPAMUNE [Suspect]
     Indication: RENAL TRANSPLANT
     Dosage: ORAL
     Route: 048
     Dates: end: 20060301

REACTIONS (3)
  - LUNG INFECTION [None]
  - LUNG INFILTRATION [None]
  - TOXIC SHOCK SYNDROME [None]
